FAERS Safety Report 20506999 (Version 3)
Quarter: 2022Q2

REPORT INFORMATION
  Report Type: Spontaneous
  Country: GB (occurrence: GB)
  Receive Date: 20220223
  Receipt Date: 20220607
  Transmission Date: 20220721
  Serious: Yes (Death, Hospitalization)
  Sender: FDA-Public Use
  Company Number: GB-VERTEX PHARMACEUTICALS-2022-003114

PATIENT
  Sex: Female

DRUGS (19)
  1. ELEXACAFTOR\IVACAFTOR\TEZACAFTOR [Suspect]
     Active Substance: ELEXACAFTOR\IVACAFTOR\TEZACAFTOR
     Indication: Cystic fibrosis
     Dosage: FULL DOSE
     Route: 048
     Dates: start: 20200805
  2. ELEXACAFTOR\IVACAFTOR\TEZACAFTOR [Suspect]
     Active Substance: ELEXACAFTOR\IVACAFTOR\TEZACAFTOR
     Dosage: 1 TAB ON MONDAY, WEDNESDAY AND FRIDAY
     Route: 048
     Dates: start: 20210706
  3. KALYDECO [Suspect]
     Active Substance: IVACAFTOR
     Indication: Cystic fibrosis
     Dosage: FULL DOSE
     Route: 048
     Dates: start: 20200805
  4. KALYDECO [Suspect]
     Active Substance: IVACAFTOR
     Dosage: 1 TAB IN AM ON TUES, THURS, SAT + SUNDAY AM + 1 TAB EVEY PM
     Route: 048
     Dates: start: 20210706
  5. AZITHROMYCIN [Concomitant]
     Active Substance: AZITHROMYCIN
  6. BISOPROLOL [Concomitant]
     Active Substance: BISOPROLOL
  7. CALCIUM CARBONATE\CHOLECALCIFEROL [Concomitant]
     Active Substance: CALCIUM CARBONATE\CHOLECALCIFEROL
  8. FLUOXETINE [Concomitant]
     Active Substance: FLUOXETINE HYDROCHLORIDE
  9. FLUTICASONE FUROATE\VILANTEROL TRIFENATATE [Concomitant]
     Active Substance: FLUTICASONE FUROATE\VILANTEROL TRIFENATATE
  10. LORAZEPAM [Concomitant]
     Active Substance: LORAZEPAM
  11. MORPHINE [Concomitant]
     Active Substance: MORPHINE
  12. OMEPRAZOLE [Concomitant]
     Active Substance: OMEPRAZOLE
  13. PARAVIT CF [Concomitant]
  14. PREDNISOLONE [Concomitant]
     Active Substance: PREDNISOLONE
  15. PREGABAN [Concomitant]
  16. ALBUTEROL [Concomitant]
     Active Substance: ALBUTEROL
  17. ZOPICON [Concomitant]
  18. DORNASE ALFA [Concomitant]
     Active Substance: DORNASE ALFA
  19. POLYETHYLENE GLYCOL 3350\POTASSIUM CHLORIDE\SODIUM BICARBONATE\SODIUM [Concomitant]
     Active Substance: POLYETHYLENE GLYCOL 3350\POTASSIUM CHLORIDE\SODIUM BICARBONATE\SODIUM CHLORIDE

REACTIONS (5)
  - Oxygen saturation decreased [Unknown]
  - Restless legs syndrome [Unknown]
  - Lethargy [Unknown]
  - Death [Fatal]
  - Infective pulmonary exacerbation of cystic fibrosis [Recovering/Resolving]

NARRATIVE: CASE EVENT DATE: 20210101
